FAERS Safety Report 16037877 (Version 1)
Quarter: 2019Q1

REPORT INFORMATION
  Report Type: Spontaneous
  Country: US (occurrence: US)
  Receive Date: 20190305
  Receipt Date: 20190305
  Transmission Date: 20190418
  Serious: Yes (Hospitalization, Other)
  Sender: FDA-Public Use
  Company Number: PHEH2019US009157

PATIENT
  Age: 74 Year
  Sex: Male
  Weight: 124.7 kg

DRUGS (14)
  1. TRIAMCINOLONE ACETONIDE. [Suspect]
     Active Substance: TRIAMCINOLONE ACETONIDE
     Indication: STOMATITIS
  2. BENADRYL CREAM [Suspect]
     Active Substance: DIPHENHYDRAMINE\ZINC ACETATE
     Indication: RASH GENERALISED
  3. BENADRYL [Suspect]
     Active Substance: DIPHENHYDRAMINE HYDROCHLORIDE
     Indication: ORAL CANDIDIASIS
  4. NYSTATIN. [Suspect]
     Active Substance: NYSTATIN
     Indication: STOMATITIS
  5. NYSTATIN. [Suspect]
     Active Substance: NYSTATIN
     Indication: RASH GENERALISED
     Dosage: UNK
     Route: 065
  6. TRIAMCINOLONE ACETONIDE. [Suspect]
     Active Substance: TRIAMCINOLONE ACETONIDE
     Indication: RASH GENERALISED
     Dosage: UNK
     Route: 065
  7. BENADRYL CREAM [Suspect]
     Active Substance: DIPHENHYDRAMINE\ZINC ACETATE
     Indication: ORAL CANDIDIASIS
  8. BENADRYL [Suspect]
     Active Substance: DIPHENHYDRAMINE HYDROCHLORIDE
     Indication: RASH GENERALISED
  9. BENADRYL [Suspect]
     Active Substance: DIPHENHYDRAMINE HYDROCHLORIDE
     Indication: STOMATITIS
     Dosage: UNK
     Route: 065
  10. NYSTATIN. [Suspect]
     Active Substance: NYSTATIN
     Indication: ORAL CANDIDIASIS
  11. TRIAMCINOLONE ACETONIDE. [Suspect]
     Active Substance: TRIAMCINOLONE ACETONIDE
     Indication: ORAL CANDIDIASIS
  12. BENADRYL CREAM [Suspect]
     Active Substance: DIPHENHYDRAMINE\ZINC ACETATE
     Indication: STOMATITIS
     Dosage: UNK
     Route: 065
  13. MERREM [Concomitant]
     Active Substance: MEROPENEM
     Indication: OSTEOMYELITIS
     Dosage: 1 DF, BID
     Route: 042
     Dates: start: 20180824
  14. ORAJEL [Suspect]
     Active Substance: ALLANTOIN\BENZOCAINE\CAMPHOR (NATURAL)\DIMETHICONE\MENTHOL
     Indication: STOMATITIS
     Dosage: UNK
     Route: 065

REACTIONS (2)
  - Drug ineffective [Unknown]
  - Blood potassium increased [Not Recovered/Not Resolved]

NARRATIVE: CASE EVENT DATE: 201809
